FAERS Safety Report 12682441 (Version 2)
Quarter: 2016Q3

REPORT INFORMATION
  Report Type: Spontaneous
  Country: FR (occurrence: FR)
  Receive Date: 20160825
  Receipt Date: 20160907
  Transmission Date: 20161109
  Serious: Yes (Hospitalization)
  Sender: FDA-Public Use
  Company Number: FR-ROCHE-1817582

PATIENT
  Age: 77 Year
  Sex: Female

DRUGS (21)
  1. ROCEPHINE [Suspect]
     Active Substance: CEFTRIAXONE SODIUM
     Indication: INFECTION
     Route: 058
     Dates: start: 20160516, end: 20160603
  2. FLAGYL [Interacting]
     Active Substance: METRONIDAZOLE\METRONIDAZOLE HYDROCHLORIDE
     Indication: INFECTION
     Route: 048
     Dates: start: 20160516, end: 20160523
  3. UVEDOSE [Concomitant]
     Active Substance: CHOLECALCIFEROL
     Dosage: ONE AMPOULE
     Route: 065
  4. ECONAZOLE [Concomitant]
     Active Substance: ECONAZOLE
     Dosage: 1% ONE APPLICATION IN THE MORNING
     Route: 065
  5. ASPIRIN. [Concomitant]
     Active Substance: ASPIRIN
     Route: 065
     Dates: start: 20160608
  6. KLIPAL CODEINE [Interacting]
     Active Substance: ACETAMINOPHEN\CODEINE PHOSPHATE
     Indication: PAIN
     Route: 048
     Dates: end: 20160609
  7. ORAMORPH [Interacting]
     Active Substance: MORPHINE SULFATE
     Indication: PAIN
     Dosage: 20MG/1ML AS REQUIRED
     Route: 048
     Dates: end: 20160609
  8. LOPERAMIDE [Concomitant]
     Active Substance: LOPERAMIDE
     Route: 065
  9. MOPRAL [Concomitant]
     Active Substance: OMEPRAZOLE SODIUM
     Route: 065
  10. VERSATIS [Concomitant]
     Active Substance: LIDOCAINE
     Dosage: 5% ONE PLASTER IN THE MORNING
     Route: 065
  11. GLUCAGEN [Concomitant]
     Active Substance: GLUCAGON HYDROCHLORIDE
     Dosage: 1MG/ML (IF BLOOD SUGAR {0.60 DESPITE RE-SUGARING, 1MG MAX PER INTAKE)
     Route: 065
  12. COVERSYL [Concomitant]
     Active Substance: PERINDOPRIL
  13. LEXOMIL [Concomitant]
     Active Substance: BROMAZEPAM
     Indication: ANXIETY
     Route: 048
     Dates: start: 20160625
  14. EFFEXOR [Concomitant]
     Active Substance: VENLAFAXINE HYDROCHLORIDE
     Indication: ANXIETY
     Route: 048
     Dates: start: 20160615
  15. LYRICA [Interacting]
     Active Substance: PREGABALIN
     Indication: NEURALGIA
     Route: 048
  16. MACROGOL 4000 [Concomitant]
     Active Substance: POLYETHYLENE GLYCOL 4000
     Dosage: ONE SACHET ON MONDAY, WEDNESDAY AND FRIDAY
     Route: 065
  17. PARACETAMOL [Concomitant]
     Active Substance: ACETAMINOPHEN
     Dosage: (1DF AT 02:00AM, 08:00AM, 12:00AM, 02:00 PM, AND 0.5DF AT 06:00PM).
     Route: 065
  18. SIMVASTATINE [Concomitant]
     Active Substance: SIMVASTATIN
     Route: 065
  19. NOVOMIX 30 FLEXPEN [Concomitant]
     Active Substance: INSULIN ASPART
     Dosage: 100IU/ML (8IU IN THE MORNING
     Route: 065
  20. VOLTAREN [Concomitant]
     Active Substance: DICLOFENAC SODIUM
     Dosage: EMULGEL AS REQUIRED.
     Route: 065
  21. TRIVASTAL [Concomitant]
     Active Substance: PIRIBEDIL
     Indication: PARKINSON^S DISEASE
     Route: 048
     Dates: start: 20160615

REACTIONS (3)
  - Hallucination [Recovered/Resolved]
  - Headache [Recovered/Resolved]
  - Confusional state [Recovered/Resolved]
